FAERS Safety Report 24363322 (Version 1)
Quarter: 2024Q3

REPORT INFORMATION
  Report Type: Report from Study
  Country: CA (occurrence: CA)
  Receive Date: 20240925
  Receipt Date: 20240925
  Transmission Date: 20241016
  Serious: Yes (Other)
  Sender: JOHNSON AND JOHNSON
  Company Number: CA-JNJFOC-20240849881

PATIENT
  Age: 55 Year
  Sex: Female

DRUGS (1)
  1. SIMPONI [Suspect]
     Active Substance: GOLIMUMAB
     Indication: Rheumatoid arthritis
     Route: 058
     Dates: start: 20230503

REACTIONS (5)
  - Cataract [Unknown]
  - Infection [Unknown]
  - Influenza like illness [Unknown]
  - Arthralgia [Unknown]
  - Hypoaesthesia [Unknown]
